FAERS Safety Report 6249939-5 (Version None)
Quarter: 2009Q2

REPORT INFORMATION
  Report Type: 
  Country: None (occurrence: None)
  Receive Date: 20090629
  Receipt Date: 20090621
  Transmission Date: 20091009
  Serious: Yes (Hospitalization)
  Sender: FDA-Public Use
  Company Number: GR-ABBOTT-09P-066-0580976-00

PATIENT
  Age: 63 Year
  Sex: Female
  Weight: 57.3 kg

DRUGS (2)
  1. ZEMPLAR [Suspect]
     Indication: HYPERPARATHYROIDISM SECONDARY
     Route: 042
     Dates: start: 20090101
  2. ISCOVER [Concomitant]
     Indication: CORONARY ARTERY DISEASE
     Route: 048
     Dates: start: 20090413

REACTIONS (3)
  - FLUID RETENTION [None]
  - RESPIRATORY TRACT INFECTION [None]
  - VOMITING [None]
